FAERS Safety Report 13668738 (Version 1)
Quarter: 2017Q2

REPORT INFORMATION
  Report Type: Spontaneous
  Country: US (occurrence: US)
  Receive Date: 20170620
  Receipt Date: 20170620
  Transmission Date: 20170830
  Serious: No
  Sender: FDA-Public Use
  Company Number: US-WELLSTAT THERAPEUTICS CORPORATION-2022260

PATIENT
  Age: 22 Year
  Sex: Female

DRUGS (2)
  1. XURIDEN [Suspect]
     Active Substance: URIDINE TRIACETATE
     Indication: OROTICACIDURIA CONGENITAL
     Route: 048
     Dates: start: 201603
  2. ASPIRIN. [Concomitant]
     Active Substance: ASPIRIN
     Route: 065

REACTIONS (2)
  - Transient ischaemic attack [Not Recovered/Not Resolved]
  - Ear discomfort [Not Recovered/Not Resolved]

NARRATIVE: CASE EVENT DATE: 201704
